FAERS Safety Report 5880078-9 (Version None)
Quarter: 2008Q3

REPORT INFORMATION
  Report Type: 
  Country: None (occurrence: None)
  Receive Date: 20080912
  Receipt Date: 20080901
  Transmission Date: 20090109
  Serious: Yes (Hospitalization)
  Sender: FDA-Public Use
  Company Number: JP-PFIZER INC-2008071193

PATIENT
  Sex: Male
  Weight: 76 kg

DRUGS (3)
  1. SU-011,248 [Suspect]
     Indication: RENAL CELL CARCINOMA
     Route: 048
     Dates: start: 20080728, end: 20080801
  2. AMLODIPINE BESYLATE [Concomitant]
     Route: 048
     Dates: start: 20080728
  3. CORTRIL [Concomitant]
     Route: 048

REACTIONS (4)
  - HEPATIC FUNCTION ABNORMAL [None]
  - JAUNDICE [None]
  - PLATELET COUNT DECREASED [None]
  - PYREXIA [None]
